FAERS Safety Report 5724178-2 (Version None)
Quarter: 2008Q2

REPORT INFORMATION
  Report Type: 
  Country: None (occurrence: None)
  Receive Date: 20080430
  Receipt Date: 20080416
  Transmission Date: 20081010
  Serious: Yes (Hospitalization, Other)
  Sender: FDA-Public Use
  Company Number: AR-AMGEN-US267899

PATIENT
  Sex: Female

DRUGS (3)
  1. PANITUMUMAB [Suspect]
     Indication: SQUAMOUS CELL CARCINOMA
     Route: 042
     Dates: start: 20080114, end: 20080204
  2. FLUOROURACIL [Concomitant]
     Dates: start: 20080114, end: 20080204
  3. CISPLATIN [Concomitant]
     Dates: start: 20080114, end: 20080204

REACTIONS (1)
  - SKIN INFECTION [None]
